FAERS Safety Report 4932196-7 (Version None)
Quarter: 2006Q1

REPORT INFORMATION
  Report Type: 
  Country: None (occurrence: None)
  Receive Date: 20060228
  Receipt Date: 20060217
  Transmission Date: 20060701
  Serious: Yes (Other)
  Sender: FDA-Public Use
  Company Number: 2006025186

PATIENT
  Age: 67 Year
  Sex: Female
  Weight: 72.5755 kg

DRUGS (10)
  1. LYRICA [Suspect]
     Indication: NEUROPATHY PERIPHERAL
  2. NEURONTIN [Suspect]
     Indication: NEUROPATHY PERIPHERAL
  3. TRILEPTAL [Concomitant]
  4. KLONOPIN [Concomitant]
  5. NORVASC [Concomitant]
  6. LOTENSIN HCT (BENAZEPRIL HYDROCHLORIDE, HYDROCHLOROTHIAZIDE) [Concomitant]
  7. ALLOPURINOL [Concomitant]
  8. LOMOTIL [Concomitant]
  9. BENADRYL [Concomitant]
  10. NASONEX [Concomitant]

REACTIONS (3)
  - CATARACT [None]
  - CONDITION AGGRAVATED [None]
  - VISION BLURRED [None]
